FAERS Safety Report 14946964 (Version 1)
Quarter: 2018Q2

REPORT INFORMATION
  Report Type: Spontaneous
  Country: FR (occurrence: FR)
  Receive Date: 20180529
  Receipt Date: 20180529
  Transmission Date: 20180711
  Serious: Yes (Other)
  Sender: FDA-Public Use
  Company Number: FR-MERCK KGAA-2048579

PATIENT
  Age: 46 Year
  Sex: Male

DRUGS (1)
  1. NOVOTHYROX [Suspect]
     Active Substance: LEVOTHYROXINE SODIUM
     Indication: HYPOTHYROIDISM

REACTIONS (14)
  - Pain in extremity [None]
  - Decreased activity [None]
  - Depression [None]
  - Insomnia [None]
  - Tachycardia [None]
  - Fatigue [None]
  - Psychotic disorder [None]
  - Mood swings [None]
  - Fear of disease [None]
  - Anxiety [None]
  - Nervousness [None]
  - Myalgia [None]
  - Blood thyroid stimulating hormone [Recovered/Resolved]
  - Sleep disorder [None]

NARRATIVE: CASE EVENT DATE: 20170327
